FAERS Safety Report 12788069 (Version 1)
Quarter: 2016Q3

REPORT INFORMATION
  Report Type: Spontaneous
  Country: US (occurrence: US)
  Receive Date: 20160928
  Receipt Date: 20160928
  Transmission Date: 20161109
  Serious: Yes (Death, Hospitalization)
  Sender: FDA-Public Use
  Company Number: None

PATIENT
  Age: 18 Year
  Sex: Female
  Weight: 57.1 kg

DRUGS (2)
  1. TRETINOIN (ALL-TRANS RETINOIC ACID, ATRA) [Suspect]
     Active Substance: TRETINOIN
     Dates: end: 20160616
  2. TRISENOX [Suspect]
     Active Substance: ARSENIC TRIOXIDE
     Dates: end: 20160615

REACTIONS (12)
  - Haemorrhage intracranial [None]
  - Coagulopathy [None]
  - Leukostasis syndrome [None]
  - Respiratory failure [None]
  - Hypotension [None]
  - Pulmonary haemorrhage [None]
  - Renal failure [None]
  - Bacteraemia [None]
  - Hypoxic-ischaemic encephalopathy [None]
  - Metabolic acidosis [None]
  - Tachycardia [None]
  - Status epilepticus [None]

NARRATIVE: CASE EVENT DATE: 20160613
